FAERS Safety Report 6207351-9 (Version None)
Quarter: 2009Q2

REPORT INFORMATION
  Report Type: 
  Country: None (occurrence: None)
  Receive Date: 20090528
  Receipt Date: 20090520
  Transmission Date: 20091009
  Serious: Yes (Other)
  Sender: FDA-Public Use
  Company Number: JP-PFIZER INC-2009204606

PATIENT
  Age: 67 Year

DRUGS (4)
  1. NORVASC [Suspect]
     Route: 048
  2. OMEPRAL [Suspect]
     Route: 048
  3. POLYCARBOPHIL CALCIUM [Concomitant]
     Dosage: UNK
     Route: 048
  4. MEILAX [Concomitant]
     Route: 048
     Dates: start: 20080227

REACTIONS (1)
  - BLOOD TRIGLYCERIDES INCREASED [None]
